FAERS Safety Report 8876556 (Version 1)
Quarter: 2012Q4

REPORT INFORMATION
  Report Type: 
  Country: JP (occurrence: JP)
  Receive Date: 20121030
  Receipt Date: 20121030
  Transmission Date: 20130627
  Serious: Yes (Other)
  Sender: FDA-Public Use
  Company Number: JP-BAYER-2012-095768

PATIENT
  Age: 71 Year
  Sex: Male

DRUGS (4)
  1. ADALAT CR [Suspect]
     Indication: ESSENTIAL HYPERTENSION
     Dosage: Daily dose 40 mg
     Route: 048
     Dates: start: 20110418, end: 201108
  2. SOLU-CORTEF [Concomitant]
     Dosage: Daily dose 5 mg
     Route: 042
  3. ALLELOCK [Concomitant]
     Dosage: 20 mg, UNK
     Route: 048
  4. NEO-MINOPHAGEN C [Concomitant]
     Dosage: 20 ml, Q2WK

REACTIONS (1)
  - Erythema multiforme [Recovered/Resolved]
